FAERS Safety Report 7238424-X (Version None)
Quarter: 2011Q1

REPORT INFORMATION
  Report Type: 
  Country: None (occurrence: None)
  Receive Date: 20110121
  Receipt Date: 20110113
  Transmission Date: 20110831
  Serious: Yes (Disabling)
  Sender: FDA-Public Use
  Company Number: AU-MERCK-1101USA01450

PATIENT
  Age: 47 Year
  Sex: Male
  Weight: 33 kg

DRUGS (1)
  1. ZOCOR [Suspect]
     Route: 048
     Dates: end: 20080808

REACTIONS (4)
  - MUSCULAR WEAKNESS [None]
  - MYALGIA [None]
  - CONFUSIONAL STATE [None]
  - AGGRESSION [None]
